FAERS Safety Report 6234482-X (Version None)
Quarter: 2009Q2

REPORT INFORMATION
  Report Type: 
  Country: None (occurrence: None)
  Receive Date: 20090618
  Receipt Date: 20080610
  Transmission Date: 20091009
  Serious: Yes (Other)
  Sender: FDA-Public Use
  Company Number: US-BRISTOL-MYERS SQUIBB COMPANY-14227987

PATIENT
  Age: 12 Year
  Sex: Male

DRUGS (1)
  1. SINEMET [Suspect]
     Indication: DYSTONIA
     Dosage: 1 DOSAGE FORM - 1.5 TAB.
     Route: 048
     Dates: start: 20060710

REACTIONS (1)
  - NO ADVERSE EVENT [None]
